FAERS Safety Report 16465462 (Version 1)
Quarter: 2019Q2

REPORT INFORMATION
  Report Type: Spontaneous
  Country: US (occurrence: US)
  Receive Date: 20190621
  Receipt Date: 20190621
  Transmission Date: 20190711
  Serious: No
  Sender: FDA-Public Use
  Company Number: PHEH2019US026292

PATIENT
  Sex: Female

DRUGS (1)
  1. TYKERB [Suspect]
     Active Substance: LAPATINIB DITOSYLATE
     Indication: BREAST CANCER FEMALE
     Dosage: 4 DF, QD (ON EMPRT STOMACH, 1 HOUR BEFORE OR 1 HOUR AFTER A MEAL))
     Route: 048
     Dates: start: 20190114

REACTIONS (2)
  - Dyspnoea [Not Recovered/Not Resolved]
  - Nail infection [Not Recovered/Not Resolved]
